FAERS Safety Report 17182576 (Version 1)
Quarter: 2019Q4

REPORT INFORMATION
  Report Type: Report from Study
  Country: GB (occurrence: GB)
  Receive Date: 20191220
  Receipt Date: 20191220
  Transmission Date: 20200122
  Serious: Yes (Other)
  Sender: FDA-Public Use
  Company Number: GB-ACCORD-165996

PATIENT

DRUGS (3)
  1. METHOTREXATE. [Suspect]
     Active Substance: METHOTREXATE
     Indication: UVEITIS
  2. FOLIC ACID. [Concomitant]
     Active Substance: FOLIC ACID
  3. MYCOPHENOLIC ACID. [Suspect]
     Active Substance: MYCOPHENOLIC ACID
     Indication: UVEITIS

REACTIONS (3)
  - Liver injury [Recovered/Resolved]
  - Fibrosis [Unknown]
  - Off label use [Unknown]
